FAERS Safety Report 4693843-0 (Version None)
Quarter: 2005Q2

REPORT INFORMATION
  Report Type: 
  Country: None (occurrence: None)
  Receive Date: 20050616
  Receipt Date: 20050603
  Transmission Date: 20051028
  Serious: Yes (Other)
  Sender: FDA-Public Use
  Company Number: 2005085123

PATIENT
  Age: 36 Year
  Sex: Female
  Weight: 74.8435 kg

DRUGS (2)
  1. DEPO-PROVERA SUSPENSION/INJ [Suspect]
     Indication: CONTRACEPTION
     Dosage: SEE IMAGE  MG Q3M
     Route: 030
     Dates: start: 20040515, end: 20040515
  2. DEPO-PROVERA SUSPENSION/INJ [Suspect]
     Indication: CONTRACEPTION
     Dosage: SEE IMAGE  MG Q3M
     Route: 030
     Dates: start: 20050215, end: 20050215

REACTIONS (4)
  - CONDITION AGGRAVATED [None]
  - MIGRAINE [None]
  - MUSCLE SPASMS [None]
  - MYOCARDIAL INFARCTION [None]
